FAERS Safety Report 6500669-1 (Version None)
Quarter: 2009Q4

REPORT INFORMATION
  Report Type: 
  Country: None (occurrence: None)
  Receive Date: 20091216
  Receipt Date: 20090104
  Transmission Date: 20100525
  Serious: No
  Sender: FDA-Public Use
  Company Number: A0762432A

PATIENT
  Age: 65 Year
  Sex: Male

DRUGS (1)
  1. COMMIT [Suspect]
     Indication: DRUG USE FOR UNKNOWN INDICATION

REACTIONS (2)
  - MALAISE [None]
  - ORAL DISCOMFORT [None]
